FAERS Safety Report 12120555 (Version 1)
Quarter: 2016Q1

REPORT INFORMATION
  Report Type: Spontaneous
  Country: US (occurrence: US)
  Receive Date: 20160226
  Receipt Date: 20160226
  Transmission Date: 20160526
  Serious: No
  Sender: FDA-Public Use
  Company Number: US-ALLERGAN-1101470US

PATIENT
  Age: 88 Year
  Sex: Female

DRUGS (3)
  1. REFRESH OPTIVE [Suspect]
     Active Substance: CARBOXYMETHYLCELLULOSE SODIUM\GLYCERIN
     Indication: DRY EYE
     Dosage: 1 GTT IN THE MORNING, AT BEDTIME, AND AS NEEDED
     Route: 047
  2. LUMIGAN [Concomitant]
     Active Substance: BIMATOPROST
     Indication: GLAUCOMA
     Dosage: 1 GTT, UNK
     Route: 047
  3. REFRESH TEARS [Suspect]
     Active Substance: CARBOXYMETHYLCELLULOSE SODIUM
     Indication: DRY EYE
     Dosage: 1 GTT, IN THE MORNING, AT BEDTIME, AND AS NEEDED
     Route: 047

REACTIONS (4)
  - Eye discharge [Recovered/Resolved]
  - Vision blurred [Recovered/Resolved]
  - Eye disorder [Recovered/Resolved]
  - Foreign body sensation in eyes [Recovered/Resolved]
